FAERS Safety Report 15537796 (Version 4)
Quarter: 2019Q1

REPORT INFORMATION
  Report Type: Report from Study
  Country: ZA (occurrence: ZA)
  Receive Date: 20181022
  Receipt Date: 20190122
  Transmission Date: 20190417
  Serious: Yes (Hospitalization)
  Sender: FDA-Public Use
  Company Number: ZA-SA-2018SA274331

PATIENT
  Age: 77 Year
  Sex: Male

DRUGS (7)
  1. VILDAGLIPTIN [Concomitant]
     Active Substance: VILDAGLIPTIN
     Dosage: AFTER BREAKFAST- 50 MG, QD
     Dates: start: 20181127
  2. GLUCOPHAGE [Concomitant]
     Active Substance: METFORMIN HYDROCHLORIDE
     Dosage: AFTER SUPPER- 1000 MG, QD
     Dates: start: 20160901
  3. OPTISULIN (INSULIN GLARGINE) [Suspect]
     Active Substance: INSULIN GLARGINE
     Indication: TYPE 2 DIABETES MELLITUS
     Dosage: 16 U, HS
     Dates: start: 20180805
  4. NO STUDY DRUG GIVEN [Suspect]
     Active Substance: UNSPECIFIED INGREDIENT
     Dosage: UNK UNK, UNK
  5. OPTISULIN (INSULIN GLARGINE) [Suspect]
     Active Substance: INSULIN GLARGINE
     Dosage: 20 U
     Dates: start: 20180831, end: 20181217
  6. OPTISULIN (INSULIN GLARGINE) [Suspect]
     Active Substance: INSULIN GLARGINE
     Dosage: 20 U, HS
     Route: 065
     Dates: start: 20180818, end: 20180927
  7. DIAGLUCIDE [Concomitant]
     Active Substance: GLICLAZIDE
     Dosage: 120 MG, QD
     Route: 065
     Dates: start: 20180831

REACTIONS (6)
  - Intentional dose omission [Unknown]
  - Bladder pain [Not Recovered/Not Resolved]
  - Cystitis [Recovered/Resolved]
  - Peripheral swelling [Recovered/Resolved]
  - Malaise [Not Recovered/Not Resolved]
  - Urinary tract infection [Recovered/Resolved]

NARRATIVE: CASE EVENT DATE: 20180910
